FAERS Safety Report 4526675-4 (Version None)
Quarter: 2004Q4

REPORT INFORMATION
  Report Type: 
  Country: None (occurrence: None)
  Receive Date: 20041213
  Receipt Date: 20041129
  Transmission Date: 20050328
  Serious: Yes (Hospitalization, Other)
  Sender: FDA-Public Use
  Company Number: 2004102606

PATIENT
  Age: 78 Year
  Sex: Female
  Weight: 122.9248 kg

DRUGS (4)
  1. CELEBREX [Suspect]
     Indication: ARTHRITIS
     Dosage: 200 MG (200 MG, 1 IN 1 D), ORAL
     Route: 048
     Dates: start: 20000101
  2. METHOTREXATE [Concomitant]
  3. FOLIC ACID [Concomitant]
  4. DIURETICS [Concomitant]

REACTIONS (3)
  - COLON CANCER [None]
  - HAEMORRHOIDAL HAEMORRHAGE [None]
  - RECTAL CANCER [None]
